FAERS Safety Report 6463164-4 (Version None)
Quarter: 2009Q4

REPORT INFORMATION
  Report Type: 
  Country: None (occurrence: None)
  Receive Date: 20091123
  Receipt Date: 20091111
  Transmission Date: 20100525
  Serious: Yes (Hospitalization)
  Sender: FDA-Public Use
  Company Number: NOV_00037_2009

PATIENT
  Age: 29 Year
  Sex: Male

DRUGS (2)
  1. ORAVERSE [Suspect]
     Indication: ANAESTHESIA REVERSAL
     Dosage: 0.4 MG 1X, INTRAORAL SUBMUCOSAL INJECTION ORAL
     Route: 048
     Dates: start: 20091013, end: 20091013
  2. MEPIVACAINE HCL [Concomitant]

REACTIONS (5)
  - HAEMATOMA INFECTION [None]
  - HAEMORRHAGE [None]
  - INFLAMMATION [None]
  - INJECTION SITE PAIN [None]
  - SUBCUTANEOUS ABSCESS [None]
